FAERS Safety Report 15821202 (Version 1)
Quarter: 2019Q1

REPORT INFORMATION
  Report Type: Spontaneous
  Country: US (occurrence: US)
  Receive Date: 20190112
  Receipt Date: 20190112
  Transmission Date: 20190417
  Serious: Yes (Disabling)
  Sender: FDA-Public Use
  Company Number: None

PATIENT
  Age: 57 Year
  Sex: Female
  Weight: 53.1 kg

DRUGS (1)
  1. CIPROFLOXACIN. [Suspect]
     Active Substance: CIPROFLOXACIN
     Indication: URINARY TRACT INFECTION
     Dosage: ?          QUANTITY:1 TABLET(S);?
     Route: 048

REACTIONS (12)
  - Neuropathy peripheral [None]
  - Pancreatitis [None]
  - Sleep disorder [None]
  - Tendon disorder [None]
  - Cataract [None]
  - Dry skin [None]
  - Anxiety [None]
  - Dry eye [None]
  - Dysphagia [None]
  - Weight decreased [None]
  - Decreased appetite [None]
  - Pain [None]

NARRATIVE: CASE EVENT DATE: 20160727
